FAERS Safety Report 17973365 (Version 1)
Quarter: 2020Q3

REPORT INFORMATION
  Report Type: Spontaneous
  Country: US (occurrence: US)
  Receive Date: 20200701
  Receipt Date: 20200701
  Transmission Date: 20201103
  Serious: Yes (Hospitalization)
  Sender: FDA-Public Use
  Company Number: None

PATIENT
  Age: 30 Year
  Sex: Female

DRUGS (1)
  1. HUMIRA [Suspect]
     Active Substance: ADALIMUMAB
     Indication: CROHN^S DISEASE
     Dosage: ?          OTHER DOSE:80MG/0.8ML;OTHER FREQUENCY:DAY 1 THEN DAY 15;?
     Route: 058
     Dates: start: 20200622, end: 20200626

REACTIONS (3)
  - Hypersensitivity [None]
  - Liver function test increased [None]
  - Blood pressure decreased [None]

NARRATIVE: CASE EVENT DATE: 20200626
